FAERS Safety Report 17731104 (Version 1)
Quarter: 2020Q2

REPORT INFORMATION
  Report Type: Spontaneous
  Country: US (occurrence: US)
  Receive Date: 20200430
  Receipt Date: 20200430
  Transmission Date: 20200714
  Serious: No
  Sender: FDA-Public Use
  Company Number: US-SUNOVION-2020SUN001271

PATIENT
  Age: 58 Year
  Sex: Female

DRUGS (2)
  1. LATUDA [Suspect]
     Active Substance: LURASIDONE HYDROCHLORIDE
     Dosage: 80 MG
     Route: 048
  2. DOXEPIN [Suspect]
     Active Substance: DOXEPIN
     Dosage: UNK

REACTIONS (3)
  - Drug interaction [Unknown]
  - Insomnia [Unknown]
  - Somnolence [Unknown]
